FAERS Safety Report 9470263 (Version 1)
Quarter: 2013Q3

REPORT INFORMATION
  Report Type: Spontaneous
  Country: US (occurrence: US)
  Receive Date: 20130822
  Receipt Date: 20130822
  Transmission Date: 20140515
  Serious: No
  Sender: FDA-Public Use
  Company Number: US-SANOFI-AVENTIS-2013SA055284

PATIENT
  Age: 68 Year
  Sex: Female
  Weight: 60 kg

DRUGS (5)
  1. MULTAQ [Suspect]
     Indication: ATRIAL FIBRILLATION
     Route: 048
     Dates: start: 201012
  2. MULTAQ [Suspect]
     Indication: HEART RATE IRREGULAR
     Route: 048
     Dates: start: 201012
  3. DOCUSATE SODIUM [Concomitant]
     Indication: FAECES HARD
  4. CRESTOR [Concomitant]
  5. ASPIRIN [Concomitant]

REACTIONS (4)
  - Constipation [Not Recovered/Not Resolved]
  - Increased upper airway secretion [Not Recovered/Not Resolved]
  - Cough [Not Recovered/Not Resolved]
  - Bradycardia [Not Recovered/Not Resolved]
